FAERS Safety Report 8287557-8 (Version None)
Quarter: 2012Q2

REPORT INFORMATION
  Report Type: 
  Country: None (occurrence: None)
  Receive Date: 20120416
  Receipt Date: 20120405
  Transmission Date: 20120825
  Serious: Yes (Hospitalization, Other)
  Sender: FDA-Public Use
  Company Number: PHFR2011GB006730

PATIENT
  Sex: Male

DRUGS (8)
  1. CLOZARIL [Suspect]
     Dosage: 200 MG DAILY
     Route: 048
  2. CLOZARIL [Suspect]
     Dosage: 250 MG, UNK
     Route: 048
  3. ACETAMINOPHEN [Concomitant]
     Indication: PAIN
     Dosage: 1 G, UNK
     Route: 048
  4. MORPHINE SULFATE [Concomitant]
     Indication: PAIN
     Dosage: UNK UKN, UNK
     Route: 048
  5. HALOPERIDOL [Concomitant]
     Indication: AGITATION
     Dosage: UNK UKN, UNK
     Route: 048
  6. TRAMADOL HCL [Concomitant]
     Indication: PAIN
     Dosage: UNK UKN, UNK
     Route: 030
  7. RANITIDINE [Concomitant]
     Indication: GASTROOESOPHAGEAL REFLUX DISEASE
     Dosage: 150 MG, BID
     Route: 048
  8. CLOZARIL [Suspect]
     Indication: SCHIZOPHRENIA
     Dosage: 200 MG, UNK
     Route: 048
     Dates: start: 19940509

REACTIONS (3)
  - HAEMATEMESIS [None]
  - PLEURAL EFFUSION [None]
  - OESOPHAGEAL RUPTURE [None]
